FAERS Safety Report 9410577 (Version 1)
Quarter: 2013Q3

REPORT INFORMATION
  Report Type: Spontaneous
  Country: US (occurrence: None)
  Receive Date: 20130718
  Receipt Date: 20130718
  Transmission Date: 20140515
  Serious: No
  Sender: FDA-Public Use
  Company Number: None

PATIENT
  Age: 46 Year
  Sex: Male
  Weight: 83.01 kg

DRUGS (2)
  1. PREZISTA [Suspect]
     Indication: HIV INFECTION
     Dosage: 800MG  ONCE A DAY  PO
     Route: 048
     Dates: start: 20130701, end: 20130706
  2. RITONAVIR [Suspect]
     Dosage: 100MG  ONCE A DAY  PO
     Route: 048
     Dates: start: 20130701, end: 20130706

REACTIONS (6)
  - Liver injury [None]
  - Hepatomegaly [None]
  - Hepatic pain [None]
  - Chromaturia [None]
  - Faeces discoloured [None]
  - Hepatic enzyme increased [None]
